FAERS Safety Report 14207827 (Version 1)
Quarter: 2017Q4

REPORT INFORMATION
  Report Type: Spontaneous
  Country: US (occurrence: US)
  Receive Date: 20171121
  Receipt Date: 20171121
  Transmission Date: 20180321
  Serious: No
  Sender: FDA-Public Use
  Company Number: US-JNJFOC-20171013534

PATIENT
  Age: 58 Year
  Sex: Male

DRUGS (8)
  1. URSODIOL. [Concomitant]
     Active Substance: URSODIOL
  2. ACYCLOVIR. [Concomitant]
     Active Substance: ACYCLOVIR
  3. FLONASE [Concomitant]
     Active Substance: FLUTICASONE PROPIONATE
  4. INSULIN [Concomitant]
     Active Substance: INSULIN NOS
  5. SYMBICORT [Concomitant]
     Active Substance: BUDESONIDE\FORMOTEROL FUMARATE DIHYDRATE
  6. IMBRUVICA [Suspect]
     Active Substance: IBRUTINIB
     Indication: MANTLE CELL LYMPHOMA
     Route: 048
     Dates: start: 20170816, end: 201711
  7. HUMALOG [Concomitant]
     Active Substance: INSULIN LISPRO
  8. XARELTO [Concomitant]
     Active Substance: RIVAROXABAN

REACTIONS (1)
  - Weight increased [Unknown]

NARRATIVE: CASE EVENT DATE: 201709
